FAERS Safety Report 7324253-5 (Version None)
Quarter: 2011Q1

REPORT INFORMATION
  Report Type: 
  Country: None (occurrence: None)
  Receive Date: 20110301
  Receipt Date: 20110223
  Transmission Date: 20110831
  Serious: Yes (Hospitalization, Other)
  Sender: FDA-Public Use
  Company Number: US-AMGEN-USASP2011010720

PATIENT
  Sex: Male

DRUGS (1)
  1. NPLATE [Suspect]
     Indication: MYELODYSPLASTIC SYNDROME
     Dosage: 500 A?G, UNK
     Dates: start: 20100628, end: 20101229

REACTIONS (2)
  - MYELODYSPLASTIC SYNDROME [None]
  - FEBRILE NEUTROPENIA [None]
